FAERS Safety Report 7804096-6 (Version None)
Quarter: 2011Q4

REPORT INFORMATION
  Report Type: 
  Country: None (occurrence: None)
  Receive Date: 20111010
  Receipt Date: 20110928
  Transmission Date: 20120403
  Serious: No
  Sender: FDA-Public Use
  Company Number: US-B.I. PHARMACEUTICALS,INC./RIDGEFIELD-2011-BP-20772BP

PATIENT
  Sex: Male

DRUGS (10)
  1. PRADAXA [Suspect]
     Indication: ATRIAL FIBRILLATION
     Dosage: 300 MG
     Route: 048
     Dates: start: 20110816, end: 20110817
  2. INSULIN [Concomitant]
     Indication: DIABETES MELLITUS
     Dosage: 10 U
  3. NIFEDIPINE [Concomitant]
  4. ZOCOR [Concomitant]
  5. PRADAXA [Suspect]
     Indication: CARDIAC DISORDER
  6. LISINOPRIL [Concomitant]
  7. TOPROL-XL [Concomitant]
  8. METFORMIN HYDROCHLORIDE [Concomitant]
     Indication: DIABETES MELLITUS
     Dosage: 1000 MG
     Route: 048
  9. ASPIRIN [Concomitant]
     Indication: ROUTINE HEALTH MAINTENANCE
     Route: 048
  10. LASIX [Concomitant]

REACTIONS (1)
  - PHARYNGEAL OEDEMA [None]
